FAERS Safety Report 6690540-7 (Version None)
Quarter: 2010Q2

REPORT INFORMATION
  Report Type: 
  Country: None (occurrence: None)
  Receive Date: 20100421
  Receipt Date: 20100414
  Transmission Date: 20101027
  Serious: Yes (Other)
  Sender: FDA-Public Use
  Company Number: US-BAXTER-2010BH009971

PATIENT
  Age: 14 Month
  Sex: Male
  Weight: 11 kg

DRUGS (8)
  1. ADVATE [Suspect]
     Indication: SURGERY
     Route: 042
     Dates: start: 20091201, end: 20091201
  2. ADVATE [Suspect]
     Indication: HAEMORRHAGE PROPHYLAXIS
     Route: 042
     Dates: start: 20091201, end: 20091201
  3. ADVATE [Suspect]
     Indication: HAEMORRHAGE
     Route: 042
     Dates: start: 20091201, end: 20091201
  4. ADVATE [Suspect]
     Indication: FACTOR VIII DEFICIENCY
     Route: 042
     Dates: start: 20091201, end: 20091201
  5. ADVATE [Suspect]
     Route: 042
     Dates: start: 20091222, end: 20091222
  6. ADVATE [Suspect]
     Route: 042
     Dates: start: 20091222, end: 20091222
  7. ADVATE [Suspect]
     Route: 042
     Dates: start: 20091222, end: 20091222
  8. ADVATE [Suspect]
     Route: 042
     Dates: start: 20091222, end: 20091222

REACTIONS (1)
  - COAGULATION FACTOR VIII LEVEL DECREASED [None]
